FAERS Safety Report 16357758 (Version 1)
Quarter: 2019Q2

REPORT INFORMATION
  Report Type: Spontaneous
  Country: IT (occurrence: IT)
  Receive Date: 20190527
  Receipt Date: 20190527
  Transmission Date: 20190711
  Serious: Yes (Hospitalization)
  Sender: FDA-Public Use
  Company Number: PHHY2019IT118727

PATIENT
  Age: 89 Year
  Sex: Female

DRUGS (8)
  1. BISOPROLOL FUMARATE. [Suspect]
     Active Substance: BISOPROLOL FUMARATE
     Indication: HYPERTENSION
     Dosage: 1 DF, QD
     Route: 048
  2. NORVASC [Suspect]
     Active Substance: AMLODIPINE BESYLATE
     Indication: HYPERTENSION
     Dosage: 1 DF, QD
     Route: 048
  3. LASIX [Suspect]
     Active Substance: FUROSEMIDE
     Indication: HYPERTENSION
     Dosage: 1 DF, QD
     Route: 048
  4. LORAZEPAM. [Suspect]
     Active Substance: LORAZEPAM
     Indication: ANXIETY
     Dosage: 1 DF, QD
     Route: 048
  5. TRIATEC (RAMIPRIL) [Suspect]
     Active Substance: RAMIPRIL
     Indication: HYPERTENSION
     Dosage: 1 DF, QD
     Route: 048
  6. LASITONE [Suspect]
     Active Substance: FUROSEMIDE\SPIRONOLACTONE
     Indication: HYPERALDOSTERONISM
     Dosage: 1 DF, QD
     Route: 048
  7. XARELTO [Suspect]
     Active Substance: RIVAROXABAN
     Indication: DEEP VEIN THROMBOSIS
     Dosage: 1 DF, QD
     Route: 048
  8. TORVAST [Suspect]
     Active Substance: ATORVASTATIN
     Indication: HYPERCHOLESTEROLAEMIA
     Dosage: 1 DF, QD
     Route: 048

REACTIONS (2)
  - Hypotension [Recovering/Resolving]
  - Hyperkalaemia [Recovering/Resolving]

NARRATIVE: CASE EVENT DATE: 20190510
